FAERS Safety Report 8190226-6 (Version None)
Quarter: 2012Q1

REPORT INFORMATION
  Report Type: 
  Country: None (occurrence: None)
  Receive Date: 20120305
  Receipt Date: 20120220
  Transmission Date: 20120608
  Serious: Yes (Hospitalization, Other)
  Sender: FDA-Public Use
  Company Number: CIP11003086

PATIENT
  Age: 81 Year
  Sex: Female

DRUGS (11)
  1. ACTONEL [Suspect]
     Indication: OSTEOPOROSIS
     Dosage: DOSAGE / REGIMEN UNKNOWN, ORAL
     Route: 048
     Dates: start: 20000516, end: 20001227
  2. FOSAMAX [Suspect]
     Indication: OSTEOPOROSIS
     Dosage: 70 MG UNKNOWN, ORAL, 10 MG UNKNOWN, ORAL
     Route: 048
     Dates: start: 20010312, end: 20080121
  3. FOSAMAX [Suspect]
     Indication: OSTEOPOROSIS
     Dosage: 70 MG UNKNOWN, ORAL, 10 MG UNKNOWN, ORAL
     Route: 048
     Dates: start: 19971009, end: 19990824
  4. ALENDRONATE SODIUM [Suspect]
     Indication: OSTEOPOROSIS
     Dosage: 70 MG ONCE WEEKLY, ORAL
     Route: 048
     Dates: start: 20080508, end: 20091127
  5. TUMS /00751519/ (CALCIUM CARBONATE) [Concomitant]
  6. TOPROL-XL [Concomitant]
  7. COZAAR [Concomitant]
  8. EVISTA [Concomitant]
  9. VITAMIN D [Concomitant]
  10. LASIX [Concomitant]
  11. PRILOSEC [Concomitant]

REACTIONS (6)
  - OSTEONECROSIS OF JAW [None]
  - COMMINUTED FRACTURE [None]
  - FRACTURE DISPLACEMENT [None]
  - PATHOLOGICAL FRACTURE [None]
  - LOW TURNOVER OSTEOPATHY [None]
  - FEMUR FRACTURE [None]
